FAERS Safety Report 18600774 (Version 1)
Quarter: 2020Q4

REPORT INFORMATION
  Report Type: Spontaneous
  Country: ET (occurrence: ET)
  Receive Date: 20201210
  Receipt Date: 20201210
  Transmission Date: 20210114
  Serious: Yes (Death, Life-Threatening, Hospitalization, Other)
  Sender: FDA-Public Use
  Company Number: ET-BRISTOL-MYERS SQUIBB COMPANY-BMS-2020-103734

PATIENT
  Age: 35 Year
  Sex: Female

DRUGS (1)
  1. WARFARIN SODIUM. [Suspect]
     Active Substance: WARFARIN SODIUM
     Indication: ATRIAL THROMBOSIS
     Dosage: 5 MG DAILY FOR 4 WEEKS AND ESCALATED TO 7.5MG DAILY TO MEET DESIRED INR
     Route: 048

REACTIONS (4)
  - Intraventricular haemorrhage [Fatal]
  - Toxicity to various agents [Fatal]
  - Subdural haematoma [Fatal]
  - Epistaxis [Unknown]
